FAERS Safety Report 4685185-4 (Version None)
Quarter: 2005Q2

REPORT INFORMATION
  Report Type: 
  Country: None (occurrence: None)
  Receive Date: 20050603
  Receipt Date: 20050523
  Transmission Date: 20051028
  Serious: Yes (Other)
  Sender: FDA-Public Use
  Company Number: 2005058472

PATIENT
  Age: 26 Year
  Sex: Female

DRUGS (1)
  1. BEXTRA [Suspect]
     Indication: MIGRAINE
     Dosage: 40 MG (40 MG, 1 IN 1 D), ORAL
     Route: 048
     Dates: start: 20041001, end: 20050401

REACTIONS (1)
  - BLISTER [None]
